FAERS Safety Report 12583493 (Version 2)
Quarter: 2018Q4

REPORT INFORMATION
  Report Type: Spontaneous
  Country: PT (occurrence: PT)
  Receive Date: 20160722
  Receipt Date: 20181003
  Transmission Date: 20190204
  Serious: Yes (Other)
  Sender: FDA-Public Use
  Company Number: PT-PFIZER INC-2016238358

PATIENT
  Age: 3 Year
  Sex: Male

DRUGS (6)
  1. GENTAMICIN SULFATE. [Suspect]
     Active Substance: GENTAMICIN SULFATE
     Indication: BRUCELLOSIS
  2. TRIMETHOPRIM SULFAMETHOXAZOLE [Concomitant]
     Active Substance: SULFAMETHOXAZOLE\TRIMETHOPRIM
     Indication: BRUCELLOSIS
  3. RIFAMPICIN [Concomitant]
     Active Substance: RIFAMPIN
     Indication: BRUCELLOSIS
  4. GENTAMICIN SULFATE. [Suspect]
     Active Substance: GENTAMICIN SULFATE
     Indication: OSTEOMYELITIS BACTERIAL
     Dosage: 5 MG/KG, DAILY
     Route: 042
  5. TRIMETHOPRIM SULFAMETHOXAZOLE [Concomitant]
     Active Substance: SULFAMETHOXAZOLE\TRIMETHOPRIM
     Indication: OSTEOMYELITIS BACTERIAL
     Dosage: 50 MG/KG, DAILY
     Route: 048
  6. RIFAMPICIN [Concomitant]
     Active Substance: RIFAMPIN
     Indication: OSTEOMYELITIS BACTERIAL
     Dosage: 20 MG/KG, DAILY
     Route: 048

REACTIONS (1)
  - Jarisch-Herxheimer reaction [Unknown]

NARRATIVE: CASE EVENT DATE: 20060125
